FAERS Safety Report 9491534 (Version 1)
Quarter: 2013Q1

REPORT INFORMATION
  Report Type: Not Available
  Country: US (occurrence: US)
  Receive Date: 20121219
  Receipt Date: 20121219
  Transmission Date: 20140127
  Serious: No
  Sender: FDA-Public Use
  Company Number: US-LUNDBECK-DKLU1080476

PATIENT
  Age: 53 Year
  Sex: Male

DRUGS (2)
  1. ONFI [Suspect]
     Indication: EPILEPSY
  2. ONFI [Suspect]

REACTIONS (3)
  - Balance disorder [Unknown]
  - Confusional state [Unknown]
  - Somnolence [Unknown]
